FAERS Safety Report 11733634 (Version 1)
Quarter: 2015Q4

REPORT INFORMATION
  Report Type: Spontaneous
  Country: US (occurrence: US)
  Receive Date: 20151110
  Receipt Date: 20151110
  Transmission Date: 20160304
  Serious: No
  Sender: FDA-Public Use
  Company Number: US-ELI_LILLY_AND_COMPANY-US201202002520

PATIENT
  Age: 40 Year
  Sex: Female

DRUGS (3)
  1. FORTEO [Suspect]
     Active Substance: TERIPARATIDE
     Indication: OSTEOPOROSIS
     Dosage: 20 UG, QD
     Route: 065
     Dates: start: 201110
  2. CORTICOSTEROIDS [Concomitant]
     Active Substance: CORTICOSTEROID NOS
     Indication: RHEUMATOID ARTHRITIS
  3. FORTEO [Suspect]
     Active Substance: TERIPARATIDE
     Dosage: 20 UG, QD
     Dates: end: 201205

REACTIONS (12)
  - Rheumatoid arthritis [Unknown]
  - Arthritis [Unknown]
  - Injection site infection [Unknown]
  - Injection site mass [Unknown]
  - Productive cough [Recovered/Resolved]
  - Foot fracture [Unknown]
  - Pyrexia [Unknown]
  - Cough [Not Recovered/Not Resolved]
  - Foot fracture [Not Recovered/Not Resolved]
  - Cellulitis [Unknown]
  - Nasopharyngitis [Unknown]
  - Underdose [Unknown]

NARRATIVE: CASE EVENT DATE: 201201
